FAERS Safety Report 19920281 (Version 1)
Quarter: 2021Q4

REPORT INFORMATION
  Report Type: Spontaneous
  Country: DE (occurrence: DE)
  Receive Date: 20211005
  Receipt Date: 20211005
  Transmission Date: 20220303
  Serious: Yes (Other)
  Sender: FDA-Public Use
  Company Number: DE-SA-SAC20210224000180

PATIENT
  Age: 28 Year
  Sex: Female

DRUGS (3)
  1. ESCITALOPRAM [Suspect]
     Active Substance: ESCITALOPRAM OXALATE
     Indication: Product used for unknown indication
     Dosage: UNK UNK, QD
     Dates: start: 202007, end: 202009
  2. ENOXAPARIN SODIUM [Suspect]
     Active Substance: ENOXAPARIN SODIUM
     Indication: Thrombosis prophylaxis
     Dosage: 1 DOSAGE FORM, QD
     Route: 058
     Dates: start: 202009, end: 20210101
  3. FRAGMIN [Concomitant]
     Active Substance: DALTEPARIN SODIUM
     Dosage: UNK
     Route: 065

REACTIONS (7)
  - Deep vein thrombosis [Unknown]
  - Fibrin D dimer increased [Unknown]
  - Pain in extremity [Unknown]
  - Unevaluable event [Unknown]
  - Feeling hot [Unknown]
  - Swelling [Unknown]
  - Exposure during pregnancy [Unknown]

NARRATIVE: CASE EVENT DATE: 20201227
